FAERS Safety Report 20547421 (Version 2)
Quarter: 2023Q2

REPORT INFORMATION
  Report Type: Report from Study
  Country: JP (occurrence: JP)
  Receive Date: 20220303
  Receipt Date: 20230417
  Transmission Date: 20230722
  Serious: Yes (Death, Hospitalization)
  Sender: FDA-Public Use
  Company Number: JP-PFIZER INC-202200342434

PATIENT
  Age: 67 Year
  Sex: Male

DRUGS (2)
  1. SUNITINIB MALATE [Suspect]
     Active Substance: SUNITINIB MALATE
     Indication: Gastrointestinal stromal tumour
     Dosage: 50 MG, DAILY (IN SIX-WEEK CYCLES WITH FOUR WEEKS ON AND TWO WEEKS OFF-TREATMENT)
     Route: 048
  2. SUNITINIB MALATE [Suspect]
     Active Substance: SUNITINIB MALATE
     Dosage: 37.5 MG, DAILY (FROM THE THIRD CYCLE)
     Route: 048

REACTIONS (4)
  - Thrombotic microangiopathy [Fatal]
  - Multiple organ dysfunction syndrome [Fatal]
  - Thrombocytopenia [Fatal]
  - Fatigue [Unknown]
